FAERS Safety Report 5822510-2 (Version None)
Quarter: 2008Q3

REPORT INFORMATION
  Report Type: 
  Country: None (occurrence: None)
  Receive Date: 20080725
  Receipt Date: 20071214
  Transmission Date: 20090109
  Serious: No
  Sender: FDA-Public Use
  Company Number: US-AMGEN-KDL257141

PATIENT
  Sex: Female
  Weight: 97.6 kg

DRUGS (10)
  1. PROCRIT [Suspect]
     Indication: RENAL FAILURE CHRONIC
     Route: 058
     Dates: start: 20070822
  2. ACTOS [Concomitant]
     Route: 048
  3. LOPID [Concomitant]
  4. ALDACTONE [Concomitant]
  5. SYNTHROID [Concomitant]
  6. LASIX [Concomitant]
  7. POTASSIUM CHLORIDE [Concomitant]
  8. ASPIRIN [Concomitant]
  9. FISH OIL [Concomitant]
  10. FIBRE, DIETARY [Concomitant]
     Route: 048

REACTIONS (1)
  - BLOOD GLUCOSE DECREASED [None]
